FAERS Safety Report 4516614-4 (Version None)
Quarter: 2004Q4

REPORT INFORMATION
  Report Type: 
  Country: None (occurrence: None)
  Receive Date: 20041202
  Receipt Date: 20041019
  Transmission Date: 20050328
  Serious: Yes (Hospitalization)
  Sender: FDA-Public Use
  Company Number: DE-MERCK-0410DEU00550

PATIENT
  Age: 76 Year
  Sex: Female

DRUGS (4)
  1. VIOXX [Suspect]
     Indication: ARTHRITIS
     Route: 048
     Dates: start: 20010702, end: 20041001
  2. RAMIPRIL [Concomitant]
     Route: 065
     Dates: start: 19960101
  3. METOPROLOL SUCCINATE [Concomitant]
     Route: 065
     Dates: start: 19960101
  4. ASPIRIN [Concomitant]
     Route: 065
     Dates: start: 19960101, end: 20040501

REACTIONS (2)
  - ANGINA PECTORIS [None]
  - MYOCARDIAL INFARCTION [None]
